FAERS Safety Report 19677673 (Version 3)
Quarter: 2021Q4

REPORT INFORMATION
  Report Type: Report from Study
  Country: US (occurrence: US)
  Receive Date: 20210809
  Receipt Date: 20211027
  Transmission Date: 20220304
  Serious: No
  Sender: FDA-Public Use
  Company Number: NVSC2021US173075

PATIENT
  Sex: Female

DRUGS (3)
  1. TABRECTA [Suspect]
     Active Substance: CAPMATINIB
     Indication: Lung neoplasm malignant
     Dosage: 400 MG, BID
     Route: 048
  2. TABRECTA [Suspect]
     Active Substance: CAPMATINIB
     Route: 048
  3. TABRECTA [Suspect]
     Active Substance: CAPMATINIB
     Route: 048

REACTIONS (4)
  - Peripheral swelling [Recovering/Resolving]
  - Joint swelling [Recovering/Resolving]
  - Abdominal discomfort [Not Recovered/Not Resolved]
  - Oedema [Not Recovered/Not Resolved]
